FAERS Safety Report 6021635-9 (Version None)
Quarter: 2008Q4

REPORT INFORMATION
  Report Type: 
  Country: None (occurrence: None)
  Receive Date: 20081229
  Receipt Date: 20081215
  Transmission Date: 20090506
  Serious: Yes (Other)
  Sender: FDA-Public Use
  Company Number: BR-PFIZER INC-2008158387

PATIENT

DRUGS (3)
  1. DETRUSITOL LA [Suspect]
     Indication: URINARY INCONTINENCE
     Dosage: 4 MG, 1X/DAY
     Route: 048
     Dates: start: 20080915, end: 20080901
  2. SERTRALINE [Concomitant]
     Dosage: UNK
     Route: 065
     Dates: start: 20030101
  3. OMEPRAZOLE [Concomitant]
     Dosage: UNK
     Route: 065
     Dates: start: 20030101

REACTIONS (1)
  - GLAUCOMA [None]
